FAERS Safety Report 20898787 (Version 4)
Quarter: 2023Q1

REPORT INFORMATION
  Report Type: Spontaneous
  Country: JP (occurrence: JP)
  Receive Date: 20220601
  Receipt Date: 20230118
  Transmission Date: 20230417
  Serious: Yes (Hospitalization, Other)
  Sender: FDA-Public Use
  Company Number: JP-MTPC-MTPC2022-0013901

PATIENT
  Age: 75 Year
  Sex: Female

DRUGS (9)
  1. REMICADE [Suspect]
     Active Substance: INFLIXIMAB
     Indication: Crohn^s disease
     Dosage: 10 MILLIGRAM/KILOGRAM, QD
     Route: 041
     Dates: start: 2017
  2. REMICADE [Suspect]
     Active Substance: INFLIXIMAB
     Dosage: 10 MILLIGRAM/KILOGRAM, QD
     Route: 041
  3. REMICADE [Suspect]
     Active Substance: INFLIXIMAB
     Dosage: UNK
     Route: 041
     Dates: start: 20220615
  4. REMICADE [Suspect]
     Active Substance: INFLIXIMAB
     Dosage: UNK
     Route: 041
  5. IMURAN [Suspect]
     Active Substance: AZATHIOPRINE
     Route: 065
  6. ALLOPURINOL [Suspect]
     Active Substance: ALLOPURINOL
     Route: 065
  7. DIGOXIN [Suspect]
     Active Substance: DIGOXIN
     Route: 065
  8. ELIQUIS [Suspect]
     Active Substance: APIXABAN
     Route: 065
  9. STELARA [Concomitant]
     Active Substance: USTEKINUMAB
     Route: 065

REACTIONS (10)
  - Cardiomegaly [Not Recovered/Not Resolved]
  - Cardiac failure [Not Recovered/Not Resolved]
  - Cytopenia [Recovered/Resolved]
  - Infection [Recovered/Resolved]
  - Cardiac failure [Unknown]
  - Dyspnoea [Unknown]
  - Atrial fibrillation [Not Recovered/Not Resolved]
  - Dyspnoea [Not Recovered/Not Resolved]
  - Platelet count decreased [Recovering/Resolving]
  - Oedema [Not Recovered/Not Resolved]
